FAERS Safety Report 5136552-6 (Version None)
Quarter: 2006Q4

REPORT INFORMATION
  Report Type: 
  Country: None (occurrence: None)
  Receive Date: 20061012
  Receipt Date: 20061004
  Transmission Date: 20070319
  Serious: Yes (Hospitalization)
  Sender: FDA-Public Use
  Company Number: HQWYE364906SEP06

PATIENT
  Age: 33 Year
  Sex: Male
  Weight: 74.91 kg

DRUGS (1)
  1. BENEFIX [Suspect]
     Indication: FACTOR IX DEFICIENCY
     Dosage: 4000 IU AS NEEDED, ON DEMAND THERAPY, INTRAVENOUS
     Route: 042
     Dates: start: 19990101

REACTIONS (2)
  - DRUG INEFFECTIVE [None]
  - SCIATIC NERVE INJURY [None]
